FAERS Safety Report 19498939 (Version 1)
Quarter: 2021Q3

REPORT INFORMATION
  Report Type: Spontaneous
  Country: US (occurrence: US)
  Receive Date: 20210706
  Receipt Date: 20210706
  Transmission Date: 20211014
  Serious: Yes (Hospitalization, Other)
  Sender: FDA-Public Use
  Company Number: US-SA-2021SA210454

PATIENT
  Age: 33 Year
  Sex: Male

DRUGS (7)
  1. RIFAMPICIN [Suspect]
     Active Substance: RIFAMPIN
     Indication: ENDOCARDITIS STAPHYLOCOCCAL
  2. VANCOMYCIN [Concomitant]
     Active Substance: VANCOMYCIN
     Indication: STAPHYLOCOCCAL INFECTION
  3. GENTAMICIN SULFATE. [Suspect]
     Active Substance: GENTAMICIN SULFATE
     Indication: ENDOCARDITIS STAPHYLOCOCCAL
  4. CEFAZOLIN [Suspect]
     Active Substance: CEFAZOLIN
     Indication: ENDOCARDITIS STAPHYLOCOCCAL
  5. RIFAMPICIN [Suspect]
     Active Substance: RIFAMPIN
     Indication: STAPHYLOCOCCAL INFECTION
  6. CEFAZOLIN [Suspect]
     Active Substance: CEFAZOLIN
     Indication: STAPHYLOCOCCAL INFECTION
  7. GENTAMICIN SULFATE. [Suspect]
     Active Substance: GENTAMICIN SULFATE
     Indication: STAPHYLOCOCCAL INFECTION

REACTIONS (19)
  - Endocarditis [Recovering/Resolving]
  - Cardiac valve vegetation [Recovering/Resolving]
  - Septic embolus [Recovering/Resolving]
  - Arteritis [Recovering/Resolving]
  - Left ventricular enlargement [Recovering/Resolving]
  - Cardiac valve abscess [Recovering/Resolving]
  - Pyrexia [Recovering/Resolving]
  - Peripheral artery thrombosis [Recovering/Resolving]
  - Peripheral ischaemia [Recovering/Resolving]
  - Pain in extremity [Recovering/Resolving]
  - Fungal endocarditis [Recovering/Resolving]
  - Carotid artery occlusion [Recovering/Resolving]
  - Asthenia [Recovering/Resolving]
  - Cellulitis [Recovering/Resolving]
  - Oedema [Recovering/Resolving]
  - Candida infection [Recovering/Resolving]
  - Paravalvular regurgitation [Recovering/Resolving]
  - Infective aneurysm [Recovering/Resolving]
  - Tenderness [Recovering/Resolving]
